FAERS Safety Report 19208491 (Version 2)
Quarter: 2021Q3

REPORT INFORMATION
  Report Type: Spontaneous
  Country: AU (occurrence: AU)
  Receive Date: 20210504
  Receipt Date: 20210914
  Transmission Date: 20211014
  Serious: Yes (Hospitalization)
  Sender: FDA-Public Use
  Company Number: AU-MDD US OPERATIONS-MDD202104-000796

PATIENT
  Age: 81 Year
  Sex: Female

DRUGS (2)
  1. APOMORPHINE HYDROCHLORIDE [Suspect]
     Active Substance: APOMORPHINE HYDROCHLORIDE
     Indication: PARKINSON^S DISEASE
     Route: 058
  2. MOTILIUM [Concomitant]
     Active Substance: DOMPERIDONE
     Dosage: 1 TO 2 DF

REACTIONS (2)
  - Pre-existing disease [Unknown]
  - Cataract [Unknown]
